FAERS Safety Report 18778604 (Version 2)
Quarter: 2021Q1

REPORT INFORMATION
  Report Type: Spontaneous
  Country: US (occurrence: US)
  Receive Date: 20210124
  Receipt Date: 20210218
  Transmission Date: 20210419
  Serious: Yes (Other)
  Sender: FDA-Public Use
  Company Number: US-009507513-2101USA009393

PATIENT
  Age: 84 Year
  Sex: Female

DRUGS (5)
  1. KEYTRUDA [Suspect]
     Active Substance: PEMBROLIZUMAB
     Indication: URETERIC CANCER
  2. MONOLAURIN [Concomitant]
  3. KEYTRUDA [Suspect]
     Active Substance: PEMBROLIZUMAB
     Indication: BREAST CANCER
     Dosage: UNK, Q3W
     Route: 042
     Dates: start: 2020, end: 2020
  4. KEYTRUDA [Suspect]
     Active Substance: PEMBROLIZUMAB
     Indication: RENAL CANCER
  5. KEYTRUDA [Suspect]
     Active Substance: PEMBROLIZUMAB
     Indication: BLADDER CANCER
     Dosage: UNK, EVERY 6 WEEKS
     Route: 042
     Dates: start: 2020

REACTIONS (4)
  - Ureteric cancer recurrent [Recovered/Resolved]
  - Bladder cancer recurrent [Recovered/Resolved]
  - Breast cancer recurrent [Recovered/Resolved]
  - Renal cancer recurrent [Recovered/Resolved]

NARRATIVE: CASE EVENT DATE: 20200701
